FAERS Safety Report 25448030 (Version 7)
Quarter: 2025Q4

REPORT INFORMATION
  Report Type: Spontaneous
  Country: US (occurrence: US)
  Receive Date: 20250617
  Receipt Date: 20251105
  Transmission Date: 20260117
  Serious: Yes (Other)
  Sender: BRISTOL-MYERS SQUIBB COMPANY
  Company Number: US-BRISTOL-MYERS SQUIBB COMPANY-2025-083724

PATIENT
  Age: 82 Year
  Sex: Female

DRUGS (4)
  1. REVLIMID [Suspect]
     Active Substance: LENALIDOMIDE
     Indication: Follicular lymphoma
     Dosage: QD FOR 21 DAYS ON AND 7 DAYS
     Route: 048
  2. REVLIMID [Suspect]
     Active Substance: LENALIDOMIDE
     Dosage: 5MG DAILY 21 DAYS ON, 7 DAYS OFF TO: 14 DAYS ON, 7 DAYS OFF THEN 7 DAYS ON AGAIN, 7 DAYS OFF (35-DAY CYCLE). STRENGTH 5MG
     Route: 048
  3. REVLIMID [Suspect]
     Active Substance: LENALIDOMIDE
     Dosage: DAILY
     Route: 048
  4. REVLIMID [Suspect]
     Active Substance: LENALIDOMIDE
     Dosage: TAKE 1 CAPSULE BY MOUTH DAILY FOR 14 DAYS, THEN 7 DAYS OFF THEN TAKE 1 CAPSULE BY MOUTH DAILY FOR 7 DAYS
     Route: 048

REACTIONS (5)
  - Constipation [Unknown]
  - Peripheral swelling [Unknown]
  - Pain in extremity [Unknown]
  - Gait disturbance [Unknown]
  - Blood bilirubin increased [Unknown]
